FAERS Safety Report 12694817 (Version 1)
Quarter: 2016Q3

REPORT INFORMATION
  Report Type: Spontaneous
  Country: US (occurrence: US)
  Receive Date: 20160829
  Receipt Date: 20160829
  Transmission Date: 20161109
  Serious: Yes (Hospitalization, Other)
  Sender: FDA-Public Use
  Company Number: US-DSJP-DSU-2016-116310

PATIENT

DRUGS (3)
  1. BENICAR [Suspect]
     Active Substance: OLMESARTAN MEDOXOMIL
     Dosage: 20 MG, UNK
     Dates: start: 20140811, end: 2014
  2. BENICAR [Suspect]
     Active Substance: OLMESARTAN MEDOXOMIL
     Indication: HYPERTENSION
     Dosage: UNK
     Dates: start: 2008
  3. AZOR [Suspect]
     Active Substance: AMLODIPINE BESYLATE\OLMESARTAN MEDOXOMIL
     Indication: HYPERTENSION
     Dosage: 5MG/20 MG, QD
     Dates: start: 2008, end: 20140811

REACTIONS (13)
  - Gastric antral vascular ectasia [Unknown]
  - Haemorrhoids [Unknown]
  - Irritable bowel syndrome [Not Recovered/Not Resolved]
  - Acute kidney injury [Recovering/Resolving]
  - Malabsorption [Not Recovered/Not Resolved]
  - Liver function test abnormal [Recovered/Resolved]
  - Gastritis erosive [Unknown]
  - Syncope [Unknown]
  - Polyp [Recovered/Resolved]
  - Diverticulum [Unknown]
  - Gallbladder disorder [Unknown]
  - Depression [Unknown]
  - Hiatus hernia [Unknown]

NARRATIVE: CASE EVENT DATE: 20090330
